FAERS Safety Report 10360980 (Version 1)
Quarter: 2014Q3

REPORT INFORMATION
  Report Type: Spontaneous
  Country: US (occurrence: US)
  Receive Date: 20140804
  Receipt Date: 20140804
  Transmission Date: 20150326
  Serious: Yes (Hospitalization)
  Sender: FDA-Public Use
  Company Number: US-JNJFOC-20140717447

PATIENT
  Sex: Male
  Weight: 71.67 kg

DRUGS (5)
  1. RAZADYNE ER [Suspect]
     Active Substance: GALANTAMINE HYDROBROMIDE
     Indication: DEMENTIA
     Route: 048
  2. RAZADYNE ER [Suspect]
     Active Substance: GALANTAMINE HYDROBROMIDE
     Indication: DEMENTIA
     Route: 048
  3. RAZADYNE ER [Suspect]
     Active Substance: GALANTAMINE HYDROBROMIDE
     Indication: DEMENTIA
     Route: 048
  4. RAZADYNE ER [Suspect]
     Active Substance: GALANTAMINE HYDROBROMIDE
     Indication: DEMENTIA
     Route: 048
  5. RAZADYNE ER [Suspect]
     Active Substance: GALANTAMINE HYDROBROMIDE
     Indication: DEMENTIA
     Route: 048

REACTIONS (8)
  - Abnormal loss of weight [Recovered/Resolved]
  - Memory impairment [Recovering/Resolving]
  - Fall [Unknown]
  - Back pain [Unknown]
  - Therapeutic response decreased [Unknown]
  - Product packaging issue [Unknown]
  - Physical product label issue [Unknown]
  - Hip fracture [Unknown]
